FAERS Safety Report 18773172 (Version 1)
Quarter: 2021Q1

REPORT INFORMATION
  Report Type: Report from Study
  Country: GB (occurrence: GB)
  Receive Date: 20210122
  Receipt Date: 20210122
  Transmission Date: 20210419
  Serious: Yes (Death, Other)
  Sender: FDA-Public Use
  Company Number: GB-GLAXOSMITHKLINE-GB2021GSK013551

PATIENT
  Age: 14 Week

DRUGS (1)
  1. MENINGOCOCCAL B RECOM VACCINE + ALOH + OMV [Suspect]
     Active Substance: MENINGOCOCCAL GROUP B VACCINE
     Indication: PROPHYLAXIS

REACTIONS (1)
  - Meningococcal infection [Fatal]

NARRATIVE: CASE EVENT DATE: 201603
